FAERS Safety Report 5506078-6 (Version None)
Quarter: 2007Q4

REPORT INFORMATION
  Report Type: 
  Country: None (occurrence: None)
  Receive Date: 20071105
  Receipt Date: 20071030
  Transmission Date: 20080405
  Serious: Yes (Other)
  Sender: FDA-Public Use
  Company Number: PHEH2004US07528

PATIENT

DRUGS (21)
  1. VIVELLE-DOT [Suspect]
     Indication: HORMONE REPLACEMENT THERAPY
     Dosage: 0.1 MG/DAY, UNK
     Route: 062
     Dates: start: 20000206, end: 20010827
  2. ESTRACE [Suspect]
     Dosage: 0.1 %, UNK
     Dates: start: 19990706, end: 20010815
  3. PROVERA [Suspect]
     Dosage: 10 MG, TEN DAYS OF EACH MONTH
     Route: 048
  4. CYCRIN [Suspect]
     Indication: HORMONE REPLACEMENT THERAPY
     Dosage: UNK, UNK
     Route: 048
     Dates: start: 19990804
  5. CYCRIN [Suspect]
     Dosage: 5 MG, UNK
     Route: 048
  6. PREMPRO [Suspect]
  7. PREMARIN [Suspect]
     Indication: HORMONE REPLACEMENT THERAPY
     Route: 048
     Dates: start: 19850101, end: 19970101
  8. PREMARIN [Suspect]
     Dosage: 0.625 MG, UNK
     Route: 048
     Dates: start: 19990913
  9. PREMARIN [Suspect]
     Dosage: 1.25 MG, UNK
     Route: 048
  10. PREMARIN [Suspect]
     Dosage: 0.3 MG, UNK
     Route: 048
     Dates: end: 20010815
  11. ESTRADERM [Suspect]
     Indication: HORMONE REPLACEMENT THERAPY
     Dosage: 0.1 MG/DAY UNK
     Route: 062
     Dates: start: 19990609, end: 19991210
  12. VIVELLE [Suspect]
     Indication: HORMONE REPLACEMENT THERAPY
     Dosage: 0.1 MG/DAY, UNK
     Route: 062
     Dates: start: 20000110
  13. OGEN [Suspect]
     Indication: HOT FLUSH
  14. ESTROGEN NOS [Suspect]
     Indication: HOT FLUSH
     Route: 062
  15. LOESTRIN 1.5/30 [Suspect]
     Indication: HORMONE REPLACEMENT THERAPY
     Dosage: 1/20, UNK
     Route: 048
     Dates: start: 19990816
  16. AYGESTIN [Suspect]
     Indication: HORMONE REPLACEMENT THERAPY
     Dosage: 5 MG, UNK
     Route: 048
     Dates: start: 20000110, end: 20000303
  17. RHINOCORT [Concomitant]
     Dosage: UNK, BID
  18. VITAMIN E [Concomitant]
     Indication: SUPPLEMENTATION THERAPY
     Dosage: 1000 IU, UNK
     Route: 048
  19. MULTI-VITAMINS [Concomitant]
     Indication: SUPPLEMENTATION THERAPY
     Route: 048
  20. VITAMIN B6 [Concomitant]
     Dosage: 50 MG, UNK
     Route: 048
  21. CALCIUM [Concomitant]
     Route: 048

REACTIONS (22)
  - ADENOCARCINOMA [None]
  - ARTHROSCOPY [None]
  - BIOPSY BREAST ABNORMAL [None]
  - BREAST CANCER [None]
  - BREAST HYPERPLASIA [None]
  - BREAST MASS [None]
  - DEPRESSION [None]
  - HOT FLUSH [None]
  - HYPERPLASIA [None]
  - HYSTERECTOMY [None]
  - MAMMOGRAM ABNORMAL [None]
  - MENISCUS LESION [None]
  - MENISCUS OPERATION [None]
  - MENORRHAGIA [None]
  - NEEDLE BIOPSY SITE UNSPECIFIED ABNORMAL [None]
  - OESTROGEN RECEPTOR ASSAY POSITIVE [None]
  - OSTEOARTHRITIS [None]
  - OVARIAN CYST [None]
  - PREMENSTRUAL SYNDROME [None]
  - PROGESTERONE RECEPTOR ASSAY POSITIVE [None]
  - SALPINGO-OOPHORECTOMY BILATERAL [None]
  - ULTRASOUND BREAST ABNORMAL [None]
